FAERS Safety Report 5090632-2 (Version None)
Quarter: 2006Q3

REPORT INFORMATION
  Report Type: 
  Country: None (occurrence: None)
  Receive Date: 20060823
  Receipt Date: 20060815
  Transmission Date: 20061208
  Serious: Yes (Hospitalization, Other)
  Sender: FDA-Public Use
  Company Number: HQWYE304231DEC04

PATIENT
  Age: 61 Year
  Sex: Female
  Weight: 64.47 kg

DRUGS (3)
  1. PREMPRO [Suspect]
     Indication: HORMONE REPLACEMENT THERAPY
     Dosage: ORAL
     Route: 048
     Dates: end: 20000301
  2. PREMARIN [Suspect]
     Dosage: 0.625 MG, ORAL
     Route: 048
     Dates: start: 19931101
  3. PROVERA [Suspect]

REACTIONS (5)
  - BREAST CANCER FEMALE [None]
  - BREAST CANCER METASTATIC [None]
  - METASTASES TO LYMPH NODES [None]
  - OESTROGEN RECEPTOR ASSAY POSITIVE [None]
  - PROGESTERONE RECEPTOR ASSAY POSITIVE [None]
